FAERS Safety Report 8282663-6 (Version None)
Quarter: 2012Q2

REPORT INFORMATION
  Report Type: 
  Country: None (occurrence: None)
  Receive Date: 20120413
  Receipt Date: 20120410
  Transmission Date: 20120825
  Serious: No
  Sender: FDA-Public Use
  Company Number: US-PFIZER INC-2012073995

PATIENT
  Sex: Female
  Weight: 90.7 kg

DRUGS (3)
  1. CELEBREX [Suspect]
     Indication: ARTHRITIS
     Dosage: 200 MG, DAILY
     Dates: end: 20120316
  2. NAPROXEN (ALEVE) [Suspect]
     Indication: ARTHRITIS
     Dosage: 2X/DAY
     Dates: start: 20120316
  3. LOTREL [Concomitant]
     Indication: BLOOD PRESSURE ABNORMAL
     Dosage: 10/40 MG, DAILY

REACTIONS (2)
  - MUSCULOSKELETAL STIFFNESS [None]
  - DRUG INEFFECTIVE [None]
